FAERS Safety Report 7995896-0 (Version None)
Quarter: 2011Q4

REPORT INFORMATION
  Report Type: 
  Country: None (occurrence: None)
  Receive Date: 20111216
  Receipt Date: 20111202
  Transmission Date: 20120403
  Serious: Yes (Other)
  Sender: FDA-Public Use
  Company Number: LMI-2011-01054

PATIENT
  Age: 26 Year
  Sex: Female
  Weight: 52.73 kg

DRUGS (3)
  1. DILAUDID [Suspect]
     Indication: PRODUCT USED FOR UNKNOWN INDICATION
     Dosage: (2 DOSAGE FORMS),INTRAVENOUS
     Route: 042
     Dates: start: 20111122, end: 20111122
  2. ABLAVAR [Suspect]
     Indication: RENAL ANEURYSM
     Dosage: VIA POWER INJECTOR (7 ML),INTRAVENOUS
     Route: 042
     Dates: start: 20111122, end: 20111122
  3. ABLAVAR [Suspect]
     Indication: NUCLEAR MAGNETIC RESONANCE IMAGING
     Dosage: VIA POWER INJECTOR (7 ML),INTRAVENOUS
     Route: 042
     Dates: start: 20111122, end: 20111122

REACTIONS (3)
  - VOMITING [None]
  - SYNCOPE [None]
  - NAUSEA [None]
